FAERS Safety Report 13325596 (Version 1)
Quarter: 2017Q1

REPORT INFORMATION
  Report Type: Spontaneous
  Country: US (occurrence: US)
  Receive Date: 20170310
  Receipt Date: 20170310
  Transmission Date: 20170428
  Serious: Yes (Other)
  Sender: FDA-Public Use
  Company Number: US-BAXALTA-2017BLT001831

PATIENT
  Age: 15 Year
  Sex: Male

DRUGS (2)
  1. ADVATE [Suspect]
     Active Substance: ANTIHEMOPHILIC FACTOR, HUMAN RECOMBINANT
     Indication: HAEMOPHILIA
     Dosage: 3000 U, EVERY 2 DY
     Route: 065
     Dates: start: 2017
  2. KOGENATE [Suspect]
     Active Substance: ANTIHEMOPHILIC FACTOR, HUMAN RECOMBINANT
     Indication: HAEMOPHILIA
     Dosage: UNK
     Route: 065
     Dates: start: 2007, end: 201701

REACTIONS (4)
  - Haemarthrosis [Unknown]
  - Haemorrhage [Unknown]
  - Haemorrhage [Unknown]
  - Treatment failure [Unknown]

NARRATIVE: CASE EVENT DATE: 201702
